FAERS Safety Report 9353246 (Version 2)
Quarter: 2013Q3

REPORT INFORMATION
  Report Type: Spontaneous
  Country: US (occurrence: US)
  Receive Date: 20130618
  Receipt Date: 20130906
  Transmission Date: 20140515
  Serious: No
  Sender: FDA-Public Use
  Company Number: US-PFIZER INC-2013180535

PATIENT
  Age: 57 Year
  Sex: Female

DRUGS (11)
  1. SUTENT [Suspect]
     Indication: SMALL INTESTINE CARCINOMA
     Dosage: 25 MG, UNK
     Route: 048
     Dates: start: 20130131
  2. AMLODIPINE BESILATE/BENAZEPRIL HYDROCHLORIDE [Concomitant]
     Dosage: UNK
  3. CALCIUM [Concomitant]
     Dosage: UNK
  4. FLEXERIL [Concomitant]
     Dosage: UNK
  5. FOLIC ACID [Concomitant]
     Dosage: UNK
  6. MAGNESIUM [Concomitant]
     Dosage: UNK
  7. NEXIUM [Concomitant]
     Dosage: UNK
  8. PROCHLORPERAZINE MALEATE [Concomitant]
     Dosage: UNK
  9. SYNTHROID [Concomitant]
     Dosage: UNK
  10. VICODIN [Concomitant]
     Dosage: UNK
  11. XANAX [Concomitant]
     Dosage: UNK

REACTIONS (3)
  - Disease progression [Unknown]
  - Small intestine carcinoma [Unknown]
  - Off label use [Unknown]
